FAERS Safety Report 6362968-6 (Version None)
Quarter: 2009Q3

REPORT INFORMATION
  Report Type: 
  Country: None (occurrence: None)
  Receive Date: 20090919
  Receipt Date: 20090616
  Transmission Date: 20100115
  Serious: No
  Sender: FDA-Public Use
  Company Number: US-ABBOTT-09P-163-0580425-00

PATIENT
  Sex: Male
  Weight: 61.29 kg

DRUGS (3)
  1. HUMIRA [Suspect]
     Indication: ANKYLOSING SPONDYLITIS
     Route: 058
     Dates: start: 20081101
  2. METHOTREXATE [Concomitant]
     Indication: ANKYLOSING SPONDYLITIS
  3. FOLIC ACID [Concomitant]
     Indication: ANKYLOSING SPONDYLITIS

REACTIONS (2)
  - DRUG DOSE OMISSION [None]
  - INJECTION SITE SWELLING [None]
